FAERS Safety Report 4557621-5 (Version None)
Quarter: 2005Q1

REPORT INFORMATION
  Report Type: 
  Country: None (occurrence: None)
  Receive Date: 20050118
  Receipt Date: 20050105
  Transmission Date: 20050727
  Serious: Yes (Hospitalization)
  Sender: FDA-Public Use
  Company Number: MED000005

PATIENT
  Age: 38 Year
  Sex: Male
  Weight: 73.0291 kg

DRUGS (2)
  1. SODIUM CHLORIDE 0.9% [Suspect]
     Indication: PLASMAPHERESIS
     Dosage: ONCE, INTRAVENOUS
     Route: 042
     Dates: start: 20050104, end: 20050104
  2. SODIUM CITRATE [Suspect]
     Indication: PLASMAPHERESIS
     Dosage: ONCE; INTRAVENOUS
     Route: 042
     Dates: start: 20050104, end: 20050104

REACTIONS (2)
  - ANXIETY [None]
  - PANCREATITIS [None]
